FAERS Safety Report 5978935-8 (Version None)
Quarter: 2008Q4

REPORT INFORMATION
  Report Type: 
  Country: None (occurrence: None)
  Receive Date: 20081204
  Receipt Date: 20080125
  Transmission Date: 20090506
  Serious: No
  Sender: FDA-Public Use
  Company Number: US-ABBOTT-06P-163-0347343-00

PATIENT
  Sex: Female
  Weight: 56.75 kg

DRUGS (3)
  1. TRICOR [Suspect]
     Indication: BLOOD CHOLESTEROL INCREASED
     Route: 048
     Dates: start: 20060501, end: 20060501
  2. TRICOR [Suspect]
     Dates: start: 20061009, end: 20061014
  3. VICODIN [Concomitant]
     Indication: PAIN
     Dosage: 5/500 MG, 1/2 TAB QD
     Route: 048

REACTIONS (10)
  - ABDOMINAL DISCOMFORT [None]
  - ABDOMINAL DISTENSION [None]
  - ARTHRALGIA [None]
  - DYSURIA [None]
  - HYPERHIDROSIS [None]
  - HYPERPHAGIA [None]
  - MUSCLE SPASMS [None]
  - MUSCULAR WEAKNESS [None]
  - PARAESTHESIA [None]
  - TINNITUS [None]
